FAERS Safety Report 9147613 (Version 1)
Quarter: 2013Q1

REPORT INFORMATION
  Report Type: Spontaneous
  Country: US (occurrence: US)
  Receive Date: 20130307
  Receipt Date: 20130307
  Transmission Date: 20140127
  Serious: No
  Sender: FDA-Public Use
  Company Number: US-B.I. PHARMACEUTICALS,INC./RIDGEFIELD-2013-BI-05924BP

PATIENT
  Sex: Male

DRUGS (2)
  1. PRADAXA [Suspect]
     Indication: ATRIAL FIBRILLATION
     Dosage: 300 MG
     Route: 048
     Dates: start: 2010
  2. PRADAXA [Suspect]
     Dosage: 150 MG
     Route: 048
     Dates: start: 2012

REACTIONS (4)
  - Contusion [Recovered/Resolved]
  - Accident [Recovered/Resolved]
  - Contusion [Recovered/Resolved]
  - Tooth infection [Recovered/Resolved]
